FAERS Safety Report 9567853 (Version 2)
Quarter: 2014Q3

REPORT INFORMATION
  Report Type: Spontaneous
  Country: US (occurrence: US)
  Receive Date: 20130930
  Receipt Date: 20140728
  Transmission Date: 20150326
  Serious: Yes (Other)
  Sender: FDA-Public Use
  Company Number: US-AMGEN-USASP2013015365

PATIENT
  Age: 28 Year
  Sex: Female
  Weight: 61.22 kg

DRUGS (7)
  1. ENBREL [Suspect]
     Active Substance: ETANERCEPT
     Indication: RHEUMATOID ARTHRITIS
     Dosage: 50 MG, QWK
     Route: 058
     Dates: start: 20040101
  2. FISH OIL [Concomitant]
     Active Substance: FISH OIL
     Dosage: 1 TAB DAILY
     Route: 048
  3. VITAMIN D3 [Concomitant]
     Active Substance: CHOLECALCIFEROL
     Dosage: 1000 UNIT, 1 TAB DAILY
     Route: 048
  4. VITAMIN D                          /00107901/ [Concomitant]
     Active Substance: ERGOCALCIFEROL
     Dosage: 3000 MG, QD
     Route: 048
  5. PRENATAL VITAMINS                  /02014401/ [Concomitant]
     Active Substance: VITAMINS
     Dosage: 1 TAB DAILY
     Route: 048
     Dates: start: 20121124, end: 20130725
  6. ENBREL [Suspect]
     Active Substance: ETANERCEPT
     Indication: ARTHRITIS
  7. SULFASALAZINE. [Concomitant]
     Active Substance: SULFASALAZINE
     Dosage: 1500 MG, BID
     Route: 048

REACTIONS (5)
  - Gestational diabetes [Unknown]
  - Arthralgia [Unknown]
  - Premature rupture of membranes [Unknown]
  - Joint swelling [Unknown]
  - Premature labour [Unknown]
